FAERS Safety Report 23635810 (Version 1)
Quarter: 2024Q1

REPORT INFORMATION
  Report Type: Spontaneous
  Country: US (occurrence: US)
  Receive Date: 20240315
  Receipt Date: 20240315
  Transmission Date: 20240410
  Serious: No
  Sender: FDA-Public Use
  Company Number: US-JNJFOC-20240327963

PATIENT
  Sex: Female

DRUGS (1)
  1. TYLENOL [Suspect]
     Active Substance: ACETAMINOPHEN
     Indication: Sarcoidosis
     Route: 065

REACTIONS (2)
  - Product use in unapproved indication [Unknown]
  - Therapeutic response unexpected [Unknown]
